FAERS Safety Report 7306161 (Version 2)
Quarter: 2013Q4

REPORT INFORMATION
  Report Type: Spontaneous
  Country: AU (occurrence: AU)
  Receive Date: 20100305
  Receipt Date: 20131227
  Transmission Date: 20140711
  Serious: No
  Sender: FDA-Public Use
  Company Number: AU-JNJFOC-20100209780

PATIENT
  Age: 46 Year
  Sex: Female

DRUGS (6)
  1. DUROGESIC [Suspect]
     Indication: BACK PAIN
     Route: 062
  2. DUROGESIC [Suspect]
     Indication: BACK PAIN
     Route: 062
     Dates: start: 20100205
  3. DUROGESIC [Suspect]
     Indication: BACK PAIN
     Route: 062
     Dates: start: 200902
  4. DUROGESIC [Suspect]
     Indication: BACK PAIN
     Route: 062
     Dates: start: 200902
  5. THYROXINE [Concomitant]
     Indication: PRODUCT USED FOR UNKNOWN INDICATION
  6. PANADOL OSTEO [Concomitant]
     Indication: PRODUCT USED FOR UNKNOWN INDICATION

REACTIONS (7)
  - Treatment noncompliance [Recovered/Resolved]
  - Drug withdrawal syndrome [Recovered/Resolved]
  - Depressed mood [Recovered/Resolved]
  - Agitation [Recovered/Resolved]
  - Restlessness [Recovered/Resolved]
  - Aphasia [Recovered/Resolved]
  - Product quality issue [Unknown]
